FAERS Safety Report 8303864 (Version 2)
Quarter: 2014Q1

REPORT INFORMATION
  Report Type: Spontaneous
  Country: US (occurrence: US)
  Receive Date: 20111221
  Receipt Date: 20140127
  Transmission Date: 20141002
  Serious: Yes (Other)
  Sender: FDA-Public Use
  Company Number: US-BAYER-2011-119610

PATIENT
  Age: 33 Year
  Sex: Female

DRUGS (5)
  1. YASMIN [Suspect]
     Dosage: UNK
     Dates: start: 200603, end: 200810
  2. SPIRONOLACTONE [Concomitant]
     Dosage: 50 MG, UNK
  3. LEVOXYL [Concomitant]
     Dosage: 100 ?G, UNK
  4. WELLBUTRIN XL [Concomitant]
     Dosage: 150 MG, UNK
  5. VALTREX [Concomitant]
     Dosage: 500 MG, UNK

REACTIONS (8)
  - Gallbladder disorder [None]
  - Post cholecystectomy syndrome [None]
  - Cholecystitis chronic [None]
  - Injury [None]
  - Pain [None]
  - Anxiety [None]
  - Anhedonia [None]
  - General physical health deterioration [None]
